FAERS Safety Report 9522026 (Version 1)
Quarter: 2013Q3

REPORT INFORMATION
  Report Type: Spontaneous
  Country: DE (occurrence: None)
  Receive Date: 20130911
  Receipt Date: 20130911
  Transmission Date: 20140515
  Serious: Yes (Congenital Anomaly)
  Sender: FDA-Public Use
  Company Number: 2013PL000143

PATIENT
  Sex: 0

DRUGS (4)
  1. ALLOPURINOL [Suspect]
     Indication: GOUT
     Route: 064
  2. FUROSEMIDE [Concomitant]
  3. PRAVASTATIN [Concomitant]
  4. CERIVASTATIN [Concomitant]

REACTIONS (2)
  - Haemangioma congenital [None]
  - Maternal drugs affecting foetus [None]
